FAERS Safety Report 8482450-X (Version None)
Quarter: 2012Q3

REPORT INFORMATION
  Report Type: 
  Country: None (occurrence: None)
  Receive Date: 20120702
  Receipt Date: 20120622
  Transmission Date: 20120928
  Serious: Yes (Hospitalization)
  Sender: FDA-Public Use
  Company Number: JP-GLAXOSMITHKLINE-B0808822A

PATIENT
  Sex: Female

DRUGS (7)
  1. ORAL CONTRACEPTIVES [Suspect]
     Indication: CONTRACEPTION
     Route: 048
     Dates: start: 20120501, end: 20120604
  2. LAMICTAL [Suspect]
     Indication: AFFECTIVE DISORDER
     Dosage: 25MG ALTERNATE DAYS
     Route: 048
     Dates: start: 20120416, end: 20120422
  3. LAMICTAL [Suspect]
     Dosage: 50MG PER DAY
     Route: 048
     Dates: start: 20120508, end: 20120604
  4. LEXOTAN [Suspect]
     Indication: AFFECTIVE DISORDER
     Dosage: 4MG PER DAY
     Route: 048
     Dates: start: 20120501, end: 20120604
  5. LITHIUM CARBONATE [Suspect]
     Indication: AFFECTIVE DISORDER
     Dosage: 400MG PER DAY
     Route: 048
     Dates: start: 20120401, end: 20120604
  6. VALPROIC ACID [Suspect]
     Indication: AFFECTIVE DISORDER
     Dosage: 600MG PER DAY
     Route: 048
     Dates: end: 20120604
  7. LAMICTAL [Suspect]
     Dosage: 25MG PER DAY
     Route: 048
     Dates: start: 20120423, end: 20120507

REACTIONS (6)
  - ORAL MUCOSAL ERYTHEMA [None]
  - DRUG ERUPTION [None]
  - RASH GENERALISED [None]
  - ERYTHEMA MULTIFORME [None]
  - CHEILITIS [None]
  - ERYTHEMA [None]
